FAERS Safety Report 23878919 (Version 1)
Quarter: 2024Q2

REPORT INFORMATION
  Report Type: Spontaneous
  Country: US (occurrence: US)
  Receive Date: 20240521
  Receipt Date: 20240521
  Transmission Date: 20240715
  Serious: No
  Sender: FDA-Public Use
  Company Number: US-INCYTE CORPORATION-2024IN005194

PATIENT

DRUGS (1)
  1. JAKAFI [Suspect]
     Active Substance: RUXOLITINIB
     Indication: Polycythaemia vera
     Dosage: 20 MG, BID MWF AND 10 MG BID SAT-SUN
     Route: 048
     Dates: start: 20230627

REACTIONS (2)
  - White blood cell count decreased [Unknown]
  - Red blood cell count decreased [Unknown]
